FAERS Safety Report 20391403 (Version 1)
Quarter: 2022Q1

REPORT INFORMATION
  Report Type: Spontaneous
  Country: US (occurrence: None)
  Receive Date: 20220128
  Receipt Date: 20220128
  Transmission Date: 20220424
  Serious: Yes (Death, Hospitalization)
  Sender: FDA-Public Use
  Company Number: None

PATIENT
  Sex: Female
  Weight: 16.7 kg

DRUGS (3)
  1. DEXAMETHASONE [Suspect]
     Active Substance: DEXAMETHASONE
     Dates: end: 20220107
  2. VINCRISTINE SULFATE [Suspect]
     Active Substance: VINCRISTINE SULFATE
     Dates: end: 20220107
  3. ONCASPAR [Suspect]
     Active Substance: PEGASPARGASE
     Dates: end: 20220103

REACTIONS (13)
  - Hypotension [None]
  - Tachycardia [None]
  - Viral myocarditis [None]
  - Febrile neutropenia [None]
  - Brain injury [None]
  - Pulse absent [None]
  - Brain oedema [None]
  - Cerebral mass effect [None]
  - Cerebral ischaemia [None]
  - Cerebral infarction [None]
  - Pneumatosis intestinalis [None]
  - Shock [None]
  - Systolic dysfunction [None]

NARRATIVE: CASE EVENT DATE: 20220113
